FAERS Safety Report 5330871-6 (Version None)
Quarter: 2007Q2

REPORT INFORMATION
  Report Type: 
  Country: None (occurrence: None)
  Receive Date: 20070516
  Receipt Date: 20070501
  Transmission Date: 20071010
  Serious: Yes (Other)
  Sender: FDA-Public Use
  Company Number: 2007BI001149

PATIENT
  Sex: Female

DRUGS (7)
  1. NATALIZUMAB [Suspect]
     Indication: MULTIPLE SCLEROSIS
     Dosage: 300 MG;QM;IV
     Route: 042
     Dates: start: 20060907, end: 20070101
  2. NEXIUM [Concomitant]
  3. ATENOLOL [Concomitant]
  4. DEPAKOTE [Concomitant]
  5. NEURONTIN [Concomitant]
  6. SYNTHROID [Concomitant]
  7. WELLBUTRIN [Concomitant]

REACTIONS (10)
  - ASPIRATION [None]
  - DYSPHAGIA [None]
  - DYSPNOEA [None]
  - LUNG INFILTRATION [None]
  - MUSCULAR WEAKNESS [None]
  - OXYGEN SATURATION DECREASED [None]
  - PULMONARY TOXICITY [None]
  - TRICUSPID VALVE INCOMPETENCE [None]
  - UPPER RESPIRATORY TRACT INFECTION [None]
  - VOCAL CORD DISORDER [None]
